FAERS Safety Report 7775720-1 (Version None)
Quarter: 2011Q3

REPORT INFORMATION
  Report Type: 
  Country: None (occurrence: None)
  Receive Date: 20110923
  Receipt Date: 20110914
  Transmission Date: 20111222
  Serious: Yes (Life-Threatening, Hospitalization, Other)
  Sender: FDA-Public Use
  Company Number: IE-GLAXOSMITHKLINE-B0747434A

PATIENT
  Sex: Female
  Weight: 79 kg

DRUGS (10)
  1. CARBOPLATIN [Suspect]
     Indication: BREAST CANCER
     Dosage: 870MG CYCLIC
     Route: 042
     Dates: start: 20110822
  2. LAPATINIB [Suspect]
     Indication: BREAST CANCER
     Dosage: 1000MG PER DAY
     Route: 048
     Dates: start: 20110822
  3. DOCETAXEL [Suspect]
     Indication: BREAST CANCER
     Dosage: 136MG CYCLIC
     Route: 042
     Dates: start: 20110822
  4. DEXAMETHASONE [Concomitant]
     Dosage: 8MG PER DAY
     Route: 048
     Dates: start: 20110822, end: 20110825
  5. MOTILIUM [Concomitant]
     Dosage: 60MG PER DAY
     Dates: start: 20110822
  6. MYCOSTATIN [Concomitant]
     Dosage: 4ML PER DAY
     Route: 048
     Dates: start: 20110822
  7. UNSPECIFIED MEDICATION [Concomitant]
     Dosage: 15ML PER DAY
     Route: 048
     Dates: start: 20110822
  8. DEXAMETHASONE [Concomitant]
     Dosage: 20MG PER DAY
     Route: 042
     Dates: start: 20110822, end: 20110822
  9. ZOFRAN [Concomitant]
     Dosage: 8MG PER DAY
     Route: 042
     Dates: start: 20110822, end: 20110822
  10. ZOFRAN [Concomitant]
     Dosage: 16MG PER DAY
     Route: 048
     Dates: start: 20110822, end: 20110825

REACTIONS (15)
  - FEBRILE NEUTROPENIA [None]
  - ATELECTASIS [None]
  - RASH GENERALISED [None]
  - RECTAL PERFORATION [None]
  - URINARY RETENTION [None]
  - ABDOMINAL PAIN LOWER [None]
  - CONSTIPATION [None]
  - DIARRHOEA [None]
  - HYPOALBUMINAEMIA [None]
  - HYPOMAGNESAEMIA [None]
  - HYPOTENSION [None]
  - DRUG HYPERSENSITIVITY [None]
  - ILEUS [None]
  - HYPOCALCAEMIA [None]
  - COLITIS [None]
